FAERS Safety Report 7912604-X (Version None)
Quarter: 2011Q4

REPORT INFORMATION
  Report Type: 
  Country: None (occurrence: None)
  Receive Date: 20111114
  Receipt Date: 20111108
  Transmission Date: 20120403
  Serious: No
  Sender: FDA-Public Use
  Company Number: US-BAYER-2011-108900

PATIENT
  Age: 77 Year
  Sex: Female
  Weight: 88 kg

DRUGS (16)
  1. CALCIUM W/MAGNESIUM/VITAMIN D [Concomitant]
  2. HYALURONIC ACID [Concomitant]
  3. NIACIN [Concomitant]
  4. GLUTATHIONE [Concomitant]
  5. ASCORBIC ACID [Concomitant]
  6. AMINO ACIDS [Concomitant]
  7. THYROID TAB [Concomitant]
  8. AMLODIPINE W/BENAZEPRIL [Concomitant]
  9. MULTI-VITAMIN [Concomitant]
  10. L-LYSINE [Concomitant]
  11. MILK THISTLE [Concomitant]
  12. FISH OIL [Concomitant]
  13. ALEVE (CAPLET) [Suspect]
     Indication: ARTHRITIS
     Dosage: 1 DF, BID
     Route: 048
     Dates: start: 20111028, end: 20111029
  14. CURCUMA LONGA [Concomitant]
  15. GREEN TEA EXTRACT [Concomitant]
  16. VITAMIN B-12 [Concomitant]

REACTIONS (2)
  - SWELLING FACE [None]
  - DYSPEPSIA [None]
